FAERS Safety Report 8566866-9 (Version None)
Quarter: 2012Q3

REPORT INFORMATION
  Report Type: 
  Country: None (occurrence: None)
  Receive Date: 20120803
  Receipt Date: 20110907
  Transmission Date: 20120928
  Serious: No
  Sender: FDA-Public Use
  Company Number: US-ABBOTT-11P-163-0852026-00

PATIENT
  Sex: Male
  Weight: 122.13 kg

DRUGS (7)
  1. KRILL OIL [Concomitant]
     Indication: PRODUCT USED FOR UNKNOWN INDICATION
     Route: 048
  2. ASPIRIN [Concomitant]
     Dosage: 30 MINUTES PRIOR TO NIASPAN
     Route: 048
     Dates: start: 20110906
  3. NIASPAN [Suspect]
     Indication: PRODUCT USED FOR UNKNOWN INDICATION
     Route: 048
     Dates: start: 20110822
  4. SIMVASTATIN [Concomitant]
     Indication: PRODUCT USED FOR UNKNOWN INDICATION
     Dosage: 40 MG
     Route: 048
  5. VITAMIN D [Concomitant]
     Indication: PRODUCT USED FOR UNKNOWN INDICATION
     Route: 048
  6. NIASPAN [Suspect]
     Dosage: 2 EVERY MORNING
     Route: 048
  7. ASPIRIN [Concomitant]
     Indication: PRODUCT USED FOR UNKNOWN INDICATION
     Dosage: 30 MINUTES PRIOR TO NIASPAAN
     Route: 048
     Dates: end: 20110906

REACTIONS (6)
  - FLUSHING [None]
  - BURNING SENSATION [None]
  - ERYTHEMA [None]
  - SINUS HEADACHE [None]
  - PARAESTHESIA [None]
  - HYPERHIDROSIS [None]
